FAERS Safety Report 21780220 (Version 2)
Quarter: 2023Q1

REPORT INFORMATION
  Report Type: Spontaneous
  Country: ES (occurrence: ES)
  Receive Date: 20221227
  Receipt Date: 20230112
  Transmission Date: 20230417
  Serious: No
  Sender: FDA-Public Use
  Company Number: ES-SERVIER-S22013089

PATIENT
  Age: 12 Year
  Sex: Female

DRUGS (11)
  1. IVABRADINE [Suspect]
     Active Substance: IVABRADINE
     Indication: Congestive cardiomyopathy
     Dosage: UNK
     Route: 065
  2. IVABRADINE [Suspect]
     Active Substance: IVABRADINE
     Indication: Off label use
  3. NIVOLUMAB [Concomitant]
     Active Substance: NIVOLUMAB
     Indication: Immunochemotherapy
     Dosage: UNK
     Dates: start: 2020
  4. FUROSEMIDE [Concomitant]
     Active Substance: FUROSEMIDE
     Indication: Congestive cardiomyopathy
     Dosage: UNK
  5. SPIRONOLACTONE [Concomitant]
     Active Substance: SPIRONOLACTONE
     Indication: Congestive cardiomyopathy
     Dosage: UNK
  6. ENTRESTO [Concomitant]
     Active Substance: SACUBITRIL\VALSARTAN
     Indication: Congestive cardiomyopathy
     Dosage: UNK
  7. CARVEDILOL [Concomitant]
     Active Substance: CARVEDILOL
     Indication: Congestive cardiomyopathy
     Dosage: UNK
  8. ASPIRIN [Concomitant]
     Active Substance: ASPIRIN
     Indication: Congestive cardiomyopathy
     Dosage: UNK
  9. ALLOPURINOL [Concomitant]
     Active Substance: ALLOPURINOL
     Indication: Hyperuricaemia
  10. IVOSIDENIB [Concomitant]
     Active Substance: IVOSIDENIB
     Indication: Product used for unknown indication
     Dosage: 500 MILLIGRAM, ONCE DAILY ON 28-DAY CYCLES
  11. LEVETIRACETAM [Concomitant]
     Active Substance: LEVETIRACETAM
     Indication: Seizure prophylaxis
     Dosage: UNK

REACTIONS (1)
  - Product use issue [Recovered/Resolved]
